FAERS Safety Report 5019316-3 (Version None)
Quarter: 2006Q2

REPORT INFORMATION
  Report Type: 
  Country: None (occurrence: None)
  Receive Date: 20060606
  Receipt Date: 20060522
  Transmission Date: 20061013
  Serious: Yes (Hospitalization)
  Sender: FDA-Public Use
  Company Number: NL-ROCHE-449093

PATIENT
  Age: 39 Year
  Sex: Male

DRUGS (7)
  1. CAPECITABINE [Suspect]
     Dosage: ON DAYS 1-14 OF 3 WEEK CYCLE. ACTUAL DOSE REPORTED AS 1800MG.
     Route: 048
     Dates: start: 20060512
  2. AVASTIN [Suspect]
     Dosage: ON DAY 1 OF 3 WEEK CYCLES. ACTUAL DOSE 525MG.
     Route: 042
     Dates: start: 20060512
  3. OXALIPLATIN [Suspect]
     Dosage: GIVEN ON DAY 1 OF 3 WEEK CYCLE FOR FIRST 6 CYCLES. ACTUAL DOSE 230MG.
     Route: 042
     Dates: start: 20060512
  4. ERBITUX [Suspect]
     Dosage: ACTUAL DOSE 720MG. GIVEN ON DAY 1 OF CYCLE 1: THEREAFTER, WEEKLY 250 MG/M2.
     Route: 042
     Dates: start: 20060512
  5. ONDANSETRON HCL [Concomitant]
  6. FENTANYL TRANSDERMAL [Concomitant]
  7. DICLOFENAC POTASSIUM [Concomitant]

REACTIONS (3)
  - ASTHENIA [None]
  - EPILEPSY [None]
  - GRAND MAL CONVULSION [None]
